FAERS Safety Report 4314270-1 (Version None)
Quarter: 2004Q1

REPORT INFORMATION
  Report Type: 
  Country: None (occurrence: None)
  Receive Date: 20040309
  Receipt Date: 20040302
  Transmission Date: 20041129
  Serious: Yes (Other)
  Sender: FDA-Public Use
  Company Number: GB-BRISTOL-MYERS SQUIBB COMPANY-12526109

PATIENT
  Age: 65 Year
  Sex: Male

DRUGS (2)
  1. CYCLOPHOSPHAMIDE [Suspect]
     Indication: AUTOIMMUNE DISORDER
     Route: 048
  2. UROMITEXAN [Suspect]
     Indication: AUTOIMMUNE DISORDER
     Route: 048

REACTIONS (3)
  - DYSPHAGIA [None]
  - DYSURIA [None]
  - HAEMATURIA [None]
